FAERS Safety Report 4722867-X (Version None)
Quarter: 2005Q3

REPORT INFORMATION
  Report Type: 
  Country: None (occurrence: None)
  Receive Date: 20050722
  Receipt Date: 20050721
  Transmission Date: 20060218
  Serious: Yes (Life-Threatening, Hospitalization)
  Sender: FDA-Public Use
  Company Number: DE-GLAXOSMITHKLINE-D0047143A

PATIENT
  Sex: Male

DRUGS (2)
  1. QUILONUM RETARD [Suspect]
     Dosage: 2700MG PER DAY
     Route: 048
  2. HYPNOREX [Concomitant]
     Dosage: 600MG PER DAY
     Route: 048

REACTIONS (2)
  - ACCIDENTAL OVERDOSE [None]
  - POISONING [None]
